FAERS Safety Report 9638352 (Version 2)
Quarter: 2013Q4

REPORT INFORMATION
  Report Type: Spontaneous
  Country: US (occurrence: US)
  Receive Date: 20131022
  Receipt Date: 20131022
  Transmission Date: 20140711
  Serious: No
  Sender: FDA-Public Use
  Company Number: US-009507513-2010SP004060

PATIENT
  Age: 56 Year
  Sex: Female

DRUGS (16)
  1. SAPHRIS [Suspect]
     Indication: BIPOLAR DISORDER
     Dosage: 5 MG, HS
     Dates: start: 20100112, end: 20100112
  2. SAPHRIS [Suspect]
     Dosage: 5 MG, BID
     Dates: start: 20100112, end: 20100122
  3. SAPHRIS [Suspect]
     Dosage: 5 MG, HS
     Dates: start: 20100122, end: 20100203
  4. SAPHRIS [Suspect]
     Dosage: 5 MG, BID
     Dates: start: 20100203
  5. SAPHRIS [Suspect]
     Dosage: 10 MG, BID
  6. SAPHRIS [Suspect]
     Dosage: 5 MG, BID
  7. LITHIUM [Concomitant]
  8. LAMICTAL [Concomitant]
  9. INDERAL LA [Concomitant]
  10. COGENTIN [Concomitant]
  11. LORAZEPAM [Concomitant]
  12. NEXIUM [Concomitant]
  13. MOBIC [Concomitant]
  14. OMEGA-3 MARINE TRIGLYCERIDES [Concomitant]
  15. MK-0805 [Concomitant]
  16. MOTRIN [Concomitant]

REACTIONS (15)
  - Local swelling [Recovered/Resolved]
  - Coordination abnormal [Unknown]
  - Urinary tract infection [Unknown]
  - Constipation [Unknown]
  - Inappropriate schedule of drug administration [Unknown]
  - Underdose [Unknown]
  - Diarrhoea [Unknown]
  - Elevated mood [Unknown]
  - Dysarthria [Unknown]
  - Dyskinesia [Unknown]
  - Dizziness [Unknown]
  - Weight increased [Unknown]
  - Tongue disorder [Unknown]
  - Depression [Unknown]
  - Gait disturbance [Unknown]
